FAERS Safety Report 24174523 (Version 1)
Quarter: 2024Q3

REPORT INFORMATION
  Report Type: Spontaneous
  Country: FR (occurrence: FR)
  Receive Date: 20240805
  Receipt Date: 20240805
  Transmission Date: 20241017
  Serious: Yes (Hospitalization)
  Sender: MYLAN
  Company Number: None

PATIENT
  Age: 71 Year
  Sex: Female
  Weight: 55 kg

DRUGS (1)
  1. ACYCLOVIR [Suspect]
     Active Substance: ACYCLOVIR
     Indication: Herpes zoster meningoencephalitis
     Dosage: 500 MILLIGRAM, Q8H (500MG EVERY 8 HOURS IV INFUSION)
     Route: 042
     Dates: start: 20240607, end: 20240620

REACTIONS (1)
  - Encephalitis toxic [Recovered/Resolved]

NARRATIVE: CASE EVENT DATE: 20240616
